FAERS Safety Report 15168762 (Version 1)
Quarter: 2018Q3

REPORT INFORMATION
  Report Type: Spontaneous
  Country: US (occurrence: US)
  Receive Date: 20180720
  Receipt Date: 20180720
  Transmission Date: 20181010
  Serious: No
  Sender: FDA-Public Use
  Company Number: US-009507513-1807USA008751

PATIENT
  Sex: Female

DRUGS (1)
  1. BELSOMRA [Suspect]
     Active Substance: SUVOREXANT
     Indication: INSOMNIA
     Dosage: 15 MG ONCE DAILY
     Route: 048
     Dates: start: 20180618, end: 20180711

REACTIONS (1)
  - Depression [Unknown]

NARRATIVE: CASE EVENT DATE: 2018
